FAERS Safety Report 9608414 (Version 2)
Quarter: 2013Q4

REPORT INFORMATION
  Report Type: Spontaneous
  Country: CA (occurrence: CA)
  Receive Date: 20131009
  Receipt Date: 20131009
  Transmission Date: 20140711
  Serious: Yes (Death, Life-Threatening, Hospitalization)
  Sender: FDA-Public Use
  Company Number: CA-RANBAXY-2005RR-01051

PATIENT
  Age: 64 Year
  Sex: Female

DRUGS (2)
  1. HYDROCHLOROTHIAZIDE [Suspect]
     Indication: PRODUCT USED FOR UNKNOWN INDICATION
     Dosage: 25 MG, SINGLE
     Route: 048
  2. TRIAMTERENE [Suspect]
     Indication: HYPERTENSION
     Dosage: 50 MG, QD
     Route: 048

REACTIONS (9)
  - Non-cardiogenic pulmonary oedema [Recovering/Resolving]
  - Liver function test abnormal [Not Recovered/Not Resolved]
  - Troponin increased [Recovering/Resolving]
  - Melaena [None]
  - Acute hepatic failure [None]
  - Disseminated intravascular coagulation [Recovering/Resolving]
  - Myalgia [Unknown]
  - Hyperhidrosis [Unknown]
  - Dyspnoea [Unknown]
